FAERS Safety Report 19247352 (Version 1)
Quarter: 2021Q2

REPORT INFORMATION
  Report Type: Spontaneous
  Country: US (occurrence: US)
  Receive Date: 20210512
  Receipt Date: 20210512
  Transmission Date: 20210717
  Serious: Yes (Hospitalization)
  Sender: FDA-Public Use
  Company Number: None

PATIENT
  Sex: Male

DRUGS (2)
  1. ZARXIO [Suspect]
     Active Substance: FILGRASTIM-SNDZ
     Indication: PLASMA CELL MYELOMA
     Dosage: ?          OTHER DOSE:1 SYR;OTHER FREQUENCY:QPM X13 D;?
     Route: 058
     Dates: start: 20210507
  2. ZARXIO [Suspect]
     Active Substance: FILGRASTIM-SNDZ

REACTIONS (4)
  - Syncope [None]
  - Dyspnoea [None]
  - Chest pain [None]
  - Adverse drug reaction [None]
